FAERS Safety Report 11026730 (Version 1)
Quarter: 2015Q2

REPORT INFORMATION
  Report Type: Spontaneous
  Country: GB (occurrence: GB)
  Receive Date: 20150414
  Receipt Date: 20150414
  Transmission Date: 20150821
  Serious: Yes (Other)
  Sender: FDA-Public Use
  Company Number: PHFR2015GB003030

PATIENT
  Age: 41 Year
  Sex: Female
  Weight: 58 kg

DRUGS (2)
  1. GILENYA [Suspect]
     Active Substance: FINGOLIMOD HYDROCHLORIDE
     Indication: RELAPSING-REMITTING MULTIPLE SCLEROSIS
     Dosage: 0.5 MG, QD
     Route: 048
     Dates: start: 20120530, end: 20150303
  2. GILENYA [Suspect]
     Active Substance: FINGOLIMOD HYDROCHLORIDE
     Dosage: 0.5 MG, QOD
     Route: 048
     Dates: start: 20150304, end: 20150309

REACTIONS (6)
  - Keratitis [Recovering/Resolving]
  - Headache [Unknown]
  - Corneal scar [Not Recovered/Not Resolved]
  - Iritis [Recovering/Resolving]
  - Neuralgia [Unknown]
  - Rash vesicular [Unknown]

NARRATIVE: CASE EVENT DATE: 20150303
